FAERS Safety Report 17418606 (Version 1)
Quarter: 2020Q1

REPORT INFORMATION
  Report Type: Spontaneous
  Country: IT (occurrence: IT)
  Receive Date: 20200214
  Receipt Date: 20200214
  Transmission Date: 20200409
  Serious: Yes (Other)
  Sender: FDA-Public Use
  Company Number: IT-TEVA-2020-IT-1184037

PATIENT
  Age: 60 Year
  Sex: Female

DRUGS (2)
  1. LACTOSE [Suspect]
     Active Substance: LACTOSE
     Route: 065
  2. ALLOPURINOLO TEVA ITALIA [Suspect]
     Active Substance: ALLOPURINOL
     Indication: BLOOD URIC ACID
     Dates: start: 20200201

REACTIONS (6)
  - Angina pectoris [Recovering/Resolving]
  - Lactose intolerance [Recovering/Resolving]
  - Fatigue [Recovering/Resolving]
  - Nasopharyngitis [Recovering/Resolving]
  - Oropharyngeal pain [Recovering/Resolving]
  - Depression [Recovering/Resolving]

NARRATIVE: CASE EVENT DATE: 202002
